FAERS Safety Report 19780980 (Version 1)
Quarter: 2021Q3

REPORT INFORMATION
  Report Type: Report from Study
  Country: US (occurrence: US)
  Receive Date: 20210903
  Receipt Date: 20210903
  Transmission Date: 20211014
  Serious: Yes (Death, Hospitalization, Other)
  Sender: FDA-Public Use
  Company Number: US-AMGEN-USASP2021134476

PATIENT
  Age: 72 Year
  Sex: Female

DRUGS (1)
  1. AMG 510 [Suspect]
     Active Substance: AMG-510
     Indication: NON-SMALL CELL LUNG CANCER
     Dosage: 960 MILLIGRAM, QD
     Route: 065
     Dates: start: 202105

REACTIONS (3)
  - Death [Fatal]
  - Pulmonary haemorrhage [Unknown]
  - Pneumonia [Recovering/Resolving]

NARRATIVE: CASE EVENT DATE: 2021
